FAERS Safety Report 9796456 (Version 1)
Quarter: 2014Q1

REPORT INFORMATION
  Report Type: Spontaneous
  Country: US (occurrence: US)
  Receive Date: 20140103
  Receipt Date: 20140103
  Transmission Date: 20141002
  Serious: No
  Sender: FDA-Public Use
  Company Number: US-TEVA-454097USA

PATIENT
  Age: 29 Year
  Sex: Female
  Weight: 76.27 kg

DRUGS (2)
  1. PARAGARD 380A [Suspect]
     Indication: CONTRACEPTION
     Route: 015
  2. CENTRUM [Concomitant]

REACTIONS (1)
  - Fungal infection [Not Recovered/Not Resolved]
